FAERS Safety Report 24434313 (Version 1)
Quarter: 2024Q4

REPORT INFORMATION
  Report Type: Spontaneous
  Country: US (occurrence: US)
  Receive Date: 20241014
  Receipt Date: 20241014
  Transmission Date: 20250115
  Serious: Yes (Death)
  Sender: PFIZER
  Company Number: US-PFIZER INC-PV202400130019

PATIENT
  Age: 69 Year
  Sex: Female

DRUGS (1)
  1. TUKYSA [Suspect]
     Active Substance: TUCATINIB
     Dosage: 500 MG, 1X/DAY

REACTIONS (1)
  - Death [Fatal]
